FAERS Safety Report 18285676 (Version 4)
Quarter: 2022Q2

REPORT INFORMATION
  Report Type: Spontaneous
  Country: CA (occurrence: CA)
  Receive Date: 20200918
  Receipt Date: 20220629
  Transmission Date: 20220720
  Serious: Yes (Hospitalization, Other)
  Sender: FDA-Public Use
  Company Number: CA-ANIPHARMA-2020-CA-001776

PATIENT
  Sex: Female

DRUGS (14)
  1. CANDESARTAN CILEXETIL [Suspect]
     Active Substance: CANDESARTAN CILEXETIL
     Indication: Product used for unknown indication
     Dosage: 16 MG QD
     Route: 048
  2. PREDNISONE [Suspect]
     Active Substance: PREDNISONE
     Indication: Product used for unknown indication
     Dosage: 25 MG QD / 10 MG QD
     Route: 065
  3. VENTOLIN HFA [Suspect]
     Active Substance: ALBUTEROL SULFATE
     Indication: Product used for unknown indication
     Dosage: DOSE TEXT: UNKNOWN DOSE AND FREQUENCY / DOSE TEXT: (SALBUTAMOL SULFATE) UNKNOWN DOSE AND FREQUENCY /
     Route: 065
  4. SPIRIVA [Suspect]
     Active Substance: TIOTROPIUM BROMIDE MONOHYDRATE
     Indication: Product used for unknown indication
     Dosage: UNKNOWN DOSE EVERY DAY
     Route: 065
  5. THEOPHYLLINE ANHYDROUS [Suspect]
     Active Substance: THEOPHYLLINE ANHYDROUS
     Dosage: 200 MG BID
     Route: 065
  6. ALBUTEROL [Suspect]
     Active Substance: ALBUTEROL
     Route: 065
  7. ACLIDINIUM BROMIDE [Suspect]
     Active Substance: ACLIDINIUM BROMIDE
     Indication: Product used for unknown indication
     Dosage: DOSE TEXT: 2 DF (UNKNOWN DOSE) TWO TIMES A DAY/ DOSE TEXT: ACLIDINIUM BROMIDE GENERIC, 2 DOSE DAILY
     Route: 055
  8. SYMBICORT [Suspect]
     Active Substance: BUDESONIDE\FORMOTEROL FUMARATE DIHYDRATE
     Indication: Product used for unknown indication
     Dosage: DOSE TEXT: 2 DF (UNKNOWN DOSE) TWO TIMES A DAY / DOSE TEXT: 4 DF (UNKNOWN DOSE) DAILY / DOSE TEXT: (
     Route: 055
  9. ESOMEPRAZOLE [Suspect]
     Active Substance: ESOMEPRAZOLE
     Indication: Product used for unknown indication
     Dosage: 40 MG UNK
     Route: 048
  10. THEOPHYLLINE [Suspect]
     Active Substance: THEOPHYLLINE
     Indication: Product used for unknown indication
     Dosage: 200 MG BID
     Route: 065
  11. PANTOPRAZOLE [Suspect]
     Active Substance: PANTOPRAZOLE
     Indication: Product used for unknown indication
     Dosage: UNKNOWN DOSE EVERY DAY
     Route: 065
  12. SINGULAIR [Suspect]
     Active Substance: MONTELUKAST SODIUM
     Indication: Product used for unknown indication
     Dosage: 10 MG QD / 10 MG UNK
     Route: 065
  13. MERCAPTOPURINE [Suspect]
     Active Substance: MERCAPTOPURINE
     Indication: Product used for unknown indication
     Dosage: UNKNOWN DOSE AND FREQUENCY
     Route: 065
  14. NASONEX [Suspect]
     Active Substance: MOMETASONE FUROATE
     Indication: Product used for unknown indication
     Dosage: 2 MG DAILY / DOSE TEXT: 50 UG, BID
     Route: 065

REACTIONS (34)
  - Bronchitis chronic [Unknown]
  - Haemoptysis [Unknown]
  - Lung opacity [Unknown]
  - Obstructive airways disorder [Unknown]
  - Occupational asthma [Unknown]
  - Oesophageal dilatation [Unknown]
  - Painful respiration [Unknown]
  - Pneumonia [Unknown]
  - Productive cough [Unknown]
  - Psoriasis [Unknown]
  - Pyrexia [Unknown]
  - Chest discomfort [Unknown]
  - Rib fracture [Unknown]
  - Sputum discoloured [Unknown]
  - Stress urinary incontinence [Unknown]
  - Vital capacity decreased [Unknown]
  - Weight increased [Unknown]
  - Wheezing [Unknown]
  - Full blood count abnormal [Unknown]
  - Glossitis [Unknown]
  - Vomiting [Unknown]
  - Sleep disorder [Unknown]
  - Condition aggravated [Unknown]
  - Blood pressure abnormal [Unknown]
  - Cough [Unknown]
  - Therapeutic product effect incomplete [Unknown]
  - Chest pain [Unknown]
  - Lung disorder [Unknown]
  - Crohn^s disease [Unknown]
  - Dyspnoea [Unknown]
  - Dyspnoea exertional [Unknown]
  - Female sterilisation [Unknown]
  - Gastrooesophageal reflux disease [Unknown]
  - Glaucoma [Unknown]

NARRATIVE: CASE EVENT DATE: 19910101
